FAERS Safety Report 6272582-9 (Version None)
Quarter: 2009Q3

REPORT INFORMATION
  Report Type: 
  Country: None (occurrence: None)
  Receive Date: 20090716
  Receipt Date: 20090716
  Transmission Date: 20100115
  Serious: Yes (Hospitalization)
  Sender: FDA-Public Use
  Company Number: None

PATIENT
  Age: 63 Year
  Sex: Male
  Weight: 73.4827 kg

DRUGS (2)
  1. PAIN RELIEF PM ACETAMINOPHEN 500MG, DIPHEN HCL KROGER [Suspect]
     Indication: SLEEP DISORDER THERAPY
     Dosage: 2 TABLETS OCCASIONALLY PO
     Route: 048
     Dates: start: 20090707, end: 20090709
  2. PAIN RELIEF PM ACETAMINOPHEN 500MG, DIPHEN HCL KROGER [Suspect]
     Indication: SLEEP DISORDER THERAPY
     Dosage: 2 TABLETS OCCASIONALLY PO
     Route: 048
     Dates: start: 20090711, end: 20090711

REACTIONS (1)
  - URINARY RETENTION [None]
